FAERS Safety Report 24195173 (Version 1)
Quarter: 2024Q3

REPORT INFORMATION
  Report Type: Spontaneous
  Country: CN (occurrence: CN)
  Receive Date: 20240809
  Receipt Date: 20240809
  Transmission Date: 20241017
  Serious: Yes (Hospitalization, Other)
  Sender: SLATE RUN
  Company Number: CN-SLATERUN-2024SRLIT00136

PATIENT
  Age: 59 Year
  Sex: Female

DRUGS (9)
  1. VANCOMYCIN [Suspect]
     Active Substance: VANCOMYCIN
     Indication: Pseudomonas infection
     Route: 065
  2. FLUCONAZOLE [Suspect]
     Active Substance: FLUCONAZOLE
     Indication: Systemic candida
     Dosage: ON POST OPERATIE DAY 14
     Route: 065
  3. CILASTATIN SODIUM\IMIPENEM [Suspect]
     Active Substance: CILASTATIN SODIUM\IMIPENEM
     Indication: Pseudomonas infection
     Route: 065
  4. COLISTIN [Suspect]
     Active Substance: COLISTIN
     Indication: Pseudomonas infection
     Route: 065
  5. CEFOPERAZONE SODIUM [Concomitant]
     Active Substance: CEFOPERAZONE SODIUM
     Indication: Antibiotic therapy
     Route: 065
  6. SULBACTAM SODIUM [Concomitant]
     Active Substance: SULBACTAM SODIUM
     Indication: Antibiotic therapy
     Route: 065
  7. ADENOSINE [Concomitant]
     Active Substance: ADENOSINE
     Route: 065
  8. GLYCYRRHIZIN [Concomitant]
     Active Substance: GLYCYRRHIZIN
     Route: 065
  9. ALBENDAZOLE [Concomitant]
     Active Substance: ALBENDAZOLE
     Route: 065

REACTIONS (1)
  - Acute kidney injury [Recovering/Resolving]
